FAERS Safety Report 10882625 (Version 1)
Quarter: 2015Q1

REPORT INFORMATION
  Report Type: Spontaneous
  Country: US (occurrence: None)
  Receive Date: 20150225
  Receipt Date: 20150225
  Transmission Date: 20150721
  Serious: Yes (Other)
  Sender: FDA-Public Use
  Company Number: None

PATIENT
  Age: 76 Year
  Sex: Male
  Weight: 101.61 kg

DRUGS (6)
  1. C-PAIN GLD (GABAPENTIN + LIDOCAINE + DICLOFENAC) CREAM [Suspect]
     Active Substance: DICLOFENAC\GABAPENTIN\LIDOCAINE
     Indication: SEIZURE
     Dosage: STRENGTH: 6%-3%-3%, QUANTITY: 1 GRAM X2 DAILY, ON SKIN
     Route: 061
     Dates: start: 20140809, end: 20150128
  2. TIMOLOL [Concomitant]
     Active Substance: TIMOLOL
  3. C-PAIN GLD (GABAPENTIN + LIDOCAINE + DICLOFENAC) CREAM [Suspect]
     Active Substance: DICLOFENAC\GABAPENTIN\LIDOCAINE
     Indication: PAIN
     Dosage: STRENGTH: 6%-3%-3%, QUANTITY: 1 GRAM X2 DAILY, ON SKIN
     Route: 061
     Dates: start: 20140809, end: 20150128
  4. METFORMIN [Concomitant]
     Active Substance: METFORMIN HYDROCHLORIDE
  5. C-PAIN GLD (GABAPENTIN + LIDOCAINE + DICLOFENAC) CREAM [Suspect]
     Active Substance: DICLOFENAC\GABAPENTIN\LIDOCAINE
     Indication: DIABETIC NEUROPATHY
     Dosage: STRENGTH: 6%-3%-3%, QUANTITY: 1 GRAM X2 DAILY, ON SKIN
     Route: 061
     Dates: start: 20140809, end: 20150128
  6. HUMULIN 70/30 [Concomitant]
     Active Substance: INSULIN HUMAN

REACTIONS (4)
  - Hypersensitivity [None]
  - Dyspepsia [None]
  - Pruritus [None]
  - Weight decreased [None]

NARRATIVE: CASE EVENT DATE: 201501
